FAERS Safety Report 20198740 (Version 1)
Quarter: 2021Q4

REPORT INFORMATION
  Report Type: Spontaneous
  Country: US (occurrence: None)
  Receive Date: 20211216
  Receipt Date: 20211216
  Transmission Date: 20220303
  Serious: Yes (Other)
  Sender: FDA-Public Use
  Company Number: None

PATIENT

DRUGS (2)
  1. METRONIDAZOLE [Suspect]
     Active Substance: METRONIDAZOLE
     Indication: Tooth infection
     Dosage: FREQUENCY : 3 TIMES A DAY;?
     Route: 048
     Dates: start: 20211206, end: 20211212
  2. PENICILLIN [Concomitant]
     Active Substance: PENICILLIN

REACTIONS (13)
  - Dizziness [None]
  - Fall [None]
  - Musculoskeletal disorder [None]
  - Musculoskeletal disorder [None]
  - Muscle spasms [None]
  - Muscular weakness [None]
  - Aphasia [None]
  - Aphonia [None]
  - Eye movement disorder [None]
  - Retching [None]
  - Hypotonia [None]
  - Coordination abnormal [None]
  - Balance disorder [None]

NARRATIVE: CASE EVENT DATE: 20211212
